FAERS Safety Report 6050065-9 (Version None)
Quarter: 2009Q1

REPORT INFORMATION
  Report Type: 
  Country: None (occurrence: None)
  Receive Date: 20090126
  Receipt Date: 20090119
  Transmission Date: 20090719
  Serious: Yes (Hospitalization, Other)
  Sender: FDA-Public Use
  Company Number: FR-BRISTOL-MYERS SQUIBB COMPANY-14477574

PATIENT
  Age: 70 Year
  Sex: Male

DRUGS (8)
  1. COUMADIN [Suspect]
     Dates: start: 20080201, end: 20081016
  2. BACTRIM [Suspect]
     Dates: start: 20080923, end: 20081016
  3. OMEPRAZOLE [Concomitant]
  4. CORDARONE [Concomitant]
     Dates: start: 20080501
  5. DEROXAT [Concomitant]
  6. SPECIAFOLDINE [Concomitant]
  7. PURINETHOL [Concomitant]
     Dates: start: 20080717, end: 20081016
  8. METHOTREXATE [Concomitant]
     Dates: start: 20080717, end: 20081016

REACTIONS (4)
  - INTERNATIONAL NORMALISED RATIO INCREASED [None]
  - LIVER DISORDER [None]
  - OVERDOSE [None]
  - RECTAL HAEMORRHAGE [None]
